FAERS Safety Report 8591339-7 (Version None)
Quarter: 2012Q3

REPORT INFORMATION
  Report Type: 
  Country: None (occurrence: None)
  Receive Date: 20120814
  Receipt Date: 20120806
  Transmission Date: 20120928
  Serious: Yes (Death, Hospitalization, Other)
  Sender: FDA-Public Use
  Company Number: MX-BRISTOL-MYERS SQUIBB COMPANY-16842247

PATIENT
  Age: 79 Year
  Sex: Female

DRUGS (2)
  1. IRBESARTAN [Suspect]
     Indication: HYPERTENSION
     Dosage: DOSE INCREASED TO 300MG FROM 2011 300 MG/12HR
     Route: 048
     Dates: start: 20060101, end: 20120206
  2. GLIMEPIRIDE+METFORMIN HCL [Concomitant]
     Indication: TYPE 2 DIABETES MELLITUS
     Route: 048
     Dates: end: 20120206

REACTIONS (3)
  - RESPIRATORY ARREST [None]
  - THYROID DISORDER [None]
  - BLOOD PRESSURE INADEQUATELY CONTROLLED [None]
